FAERS Safety Report 23760129 (Version 2)
Quarter: 2024Q3

REPORT INFORMATION
  Report Type: Report from Study
  Country: KR (occurrence: KR)
  Receive Date: 20240419
  Receipt Date: 20240724
  Transmission Date: 20241016
  Serious: Yes (Hospitalization, Other)
  Sender: Haleon PLC
  Company Number: KR-HALEON-2167303

PATIENT
  Age: 51 Year
  Sex: Male
  Weight: 79 kg

DRUGS (26)
  1. PANTOPRAZOLE SODIUM [Suspect]
     Active Substance: PANTOPRAZOLE SODIUM
     Indication: Peptic ulcer
     Route: 048
     Dates: start: 20190817, end: 20190817
  2. IBUPROFEN [Suspect]
     Active Substance: IBUPROFEN
     Dates: start: 20190817, end: 20190819
  3. IBUPROFEN [Suspect]
     Active Substance: IBUPROFEN
     Indication: Peptic ulcer
     Route: 065
  4. LANSOPRAZOLE [Suspect]
     Active Substance: LANSOPRAZOLE
     Indication: Peptic ulcer
     Route: 048
     Dates: start: 20190817, end: 20190819
  5. TRAMADOL HYDROCHLORIDE [Suspect]
     Active Substance: TRAMADOL HYDROCHLORIDE
     Indication: Peptic ulcer
     Route: 042
     Dates: start: 20190817, end: 20190817
  6. TRAMADOL HYDROCHLORIDE [Suspect]
     Active Substance: TRAMADOL HYDROCHLORIDE
     Route: 042
     Dates: start: 20191118, end: 20191118
  7. CEFACLOR [Suspect]
     Active Substance: CEFACLOR
     Indication: Peptic ulcer
     Route: 065
     Dates: start: 20191118, end: 20191120
  8. EPERISONE HYDROCHLORIDE [Suspect]
     Active Substance: EPERISONE HYDROCHLORIDE
     Indication: Peptic ulcer
     Route: 065
  9. TIROPRAMIDE HYDROCHLORIDE [Suspect]
     Active Substance: TIROPRAMIDE HYDROCHLORIDE
     Indication: Peptic ulcer
     Route: 048
     Dates: start: 20190817, end: 20190819
  10. SODIUM ALGINATE [Suspect]
     Active Substance: SODIUM ALGINATE
     Indication: Peptic ulcer
     Route: 048
     Dates: start: 20190817, end: 20190819
  11. SIMETHICONE (DIMETHICONE) [Suspect]
     Active Substance: DIMETHICONE
     Indication: Peptic ulcer
     Dosage: 1 DOSAGE FORM
     Route: 048
     Dates: start: 20190817, end: 20190819
  12. CIMETIDINE [Suspect]
     Active Substance: CIMETIDINE
     Indication: Peptic ulcer
     Route: 042
     Dates: start: 20190817, end: 20190817
  13. SCOPOLAMINE [Suspect]
     Active Substance: SCOPOLAMINE
     Indication: Peptic ulcer
     Route: 042
     Dates: start: 20190817, end: 20190817
  14. SCOPOLAMINE [Suspect]
     Active Substance: SCOPOLAMINE
     Route: 042
     Dates: start: 20191118, end: 20191118
  15. PANCREATIN [Suspect]
     Active Substance: PANCRELIPASE
     Indication: Peptic ulcer
     Dosage: 1 DOSAGE FORM
     Route: 048
     Dates: start: 20190817, end: 20190819
  16. URSODIOL [Suspect]
     Active Substance: URSODIOL
     Indication: Peptic ulcer
     Dosage: 1 DOSAGE FORM
     Route: 048
     Dates: start: 20190817, end: 20190819
  17. CIMETROPIUM BROMIDE [Suspect]
     Active Substance: CIMETROPIUM BROMIDE
     Indication: Peptic ulcer
     Route: 042
     Dates: start: 20190824, end: 20190824
  18. NICARDIPINE HYDROCHLORIDE [Suspect]
     Active Substance: NICARDIPINE HYDROCHLORIDE
     Indication: Peptic ulcer
     Route: 042
     Dates: start: 20191118, end: 20191118
  19. NEFOPAM HYDROCHLORIDE [Suspect]
     Active Substance: NEFOPAM HYDROCHLORIDE
     Indication: Peptic ulcer
     Route: 042
     Dates: start: 20190817, end: 20190817
  20. APAP [Suspect]
     Active Substance: ACETAMINOPHEN
     Indication: Peptic ulcer
     Route: 048
     Dates: start: 20191118, end: 20191120
  21. ESOMEPRAZOLE SODIUM [Suspect]
     Active Substance: ESOMEPRAZOLE SODIUM
     Indication: Peptic ulcer
     Route: 042
     Dates: start: 20190818, end: 20190818
  22. KETOROLAC TROMETHAMINE [Suspect]
     Active Substance: KETOROLAC TROMETHAMINE
     Indication: Peptic ulcer
     Route: 065
  23. SODIUM PHOSPHATE [Suspect]
     Active Substance: SODIUM PHOSPHATE
     Indication: Peptic ulcer
     Route: 065
  24. METOCLOPRAMIDE HYDROCHLORIDE [Suspect]
     Active Substance: METOCLOPRAMIDE HYDROCHLORIDE
     Indication: Peptic ulcer
     Route: 065
  25. ATORVASTATIN CALCIUM [Concomitant]
     Active Substance: ATORVASTATIN CALCIUM
     Indication: Peptic ulcer
     Route: 065
  26. PANTOPRAZOLE SODIUM [Suspect]
     Active Substance: PANTOPRAZOLE SODIUM
     Indication: Peptic ulcer
     Dosage: DOSE FORM: ENTERIC COATED TABLET
     Route: 048
     Dates: start: 20190817, end: 20190817

REACTIONS (4)
  - Cholelithiasis [Recovered/Resolved]
  - Cholecystitis acute [Recovered/Resolved]
  - Abdominal pain [Recovered/Resolved]
  - Gastritis [Recovered/Resolved]

NARRATIVE: CASE EVENT DATE: 20190817
